FAERS Safety Report 7702936-2 (Version None)
Quarter: 2011Q3

REPORT INFORMATION
  Report Type: 
  Country: None (occurrence: None)
  Receive Date: 20110823
  Receipt Date: 20110817
  Transmission Date: 20111222
  Serious: Yes (Life-Threatening, Hospitalization)
  Sender: FDA-Public Use
  Company Number: PHHY2011DE73194

PATIENT
  Sex: Male
  Weight: 79 kg

DRUGS (2)
  1. AFINITOR [Suspect]
     Dosage: 10 MG/DAY
     Route: 048
  2. AFINITOR [Suspect]
     Indication: RENAL CELL CARCINOMA
     Dosage: 10 MG/ DAY
     Route: 048
     Dates: start: 20110503, end: 20110805

REACTIONS (2)
  - LEFT VENTRICULAR FAILURE [None]
  - ACUTE MYOCARDIAL INFARCTION [None]
